FAERS Safety Report 10664643 (Version 1)
Quarter: 2014Q4

REPORT INFORMATION
  Report Type: Spontaneous
  Country: IT (occurrence: None)
  Receive Date: 20141217
  Receipt Date: 20141217
  Transmission Date: 20150529
  Serious: Yes (Other)
  Sender: FDA-Public Use
  Company Number: 2662543

PATIENT
  Age: 56 Year
  Sex: Female

DRUGS (3)
  1. (CARBOPLATIN) [Suspect]
     Active Substance: CARBOPLATIN
     Indication: OVARIAN CANCER
     Dosage: AS NCESSARY,?(NOT OTHERWISE SPECIFIED)
     Route: 042
     Dates: start: 20141118, end: 20141118
  2. (ONDANSETRON) [Concomitant]
     Active Substance: ONDANSETRON
  3. (DEXAMETHASONE) [Concomitant]
     Active Substance: DEXAMETHASONE

REACTIONS (4)
  - Glossodynia [None]
  - Feeling hot [None]
  - Erythema [None]
  - Pruritus [None]

NARRATIVE: CASE EVENT DATE: 20141118
